FAERS Safety Report 13777578 (Version 4)
Quarter: 2017Q3

REPORT INFORMATION
  Report Type: Report from Study
  Country: EC (occurrence: EC)
  Receive Date: 20170721
  Receipt Date: 20170829
  Transmission Date: 20171127
  Serious: Yes (Other)
  Sender: FDA-Public Use
  Company Number: PHHY2017EC082484

PATIENT
  Age: 45 Year
  Sex: Male
  Weight: 70 kg

DRUGS (4)
  1. COSENTYX [Suspect]
     Active Substance: SECUKINUMAB
     Dosage: UNK
     Route: 058
     Dates: start: 20170731
  2. ENDIAL DIGEST [Concomitant]
     Indication: IRRITABLE BOWEL SYNDROME
     Dosage: 20 MG, QID
     Route: 048
     Dates: start: 20170504
  3. COSENTYX [Suspect]
     Active Substance: SECUKINUMAB
     Indication: ANKYLOSING SPONDYLITIS
     Dosage: 150 MG, QMO
     Route: 058
     Dates: start: 20170503
  4. INVIGAN [Concomitant]
     Indication: IRRITABLE BOWEL SYNDROME
     Dosage: 20 MG, Q12H
     Route: 048
     Dates: start: 20170504

REACTIONS (15)
  - Constipation [Recovering/Resolving]
  - Diarrhoea [Recovering/Resolving]
  - Infection parasitic [Unknown]
  - Colitis ulcerative [Unknown]
  - Haemorrhage [Recovering/Resolving]
  - Arthralgia [Not Recovered/Not Resolved]
  - Pain in extremity [Not Recovered/Not Resolved]
  - Irritable bowel syndrome [Unknown]
  - Weight decreased [Unknown]
  - Abdominal pain upper [Recovering/Resolving]
  - Haemorrhoids [Recovering/Resolving]
  - Colitis [Recovering/Resolving]
  - Influenza [Recovered/Resolved]
  - Malaise [Unknown]
  - Muscle atrophy [Unknown]

NARRATIVE: CASE EVENT DATE: 20170525
